FAERS Safety Report 4912235-X (Version None)
Quarter: 2006Q1

REPORT INFORMATION
  Report Type: 
  Country: None (occurrence: None)
  Receive Date: 20060215
  Receipt Date: 20051104
  Transmission Date: 20060701
  Serious: No
  Sender: FDA-Public Use
  Company Number: US-GLAXOSMITHKLINE-A0580904A

PATIENT
  Age: 38 Year
  Sex: Female

DRUGS (1)
  1. VALTREX [Suspect]
     Dosage: 1000MG AS REQUIRED
     Route: 048

REACTIONS (1)
  - SWELLING FACE [None]
